FAERS Safety Report 6619308-4 (Version None)
Quarter: 2010Q1

REPORT INFORMATION
  Report Type: 
  Country: None (occurrence: None)
  Receive Date: 20100303
  Receipt Date: 20100225
  Transmission Date: 20100710
  Serious: Yes (Life-Threatening)
  Sender: FDA-Public Use
  Company Number: 2010TJ0048

PATIENT
  Age: 2 Year
  Sex: Male

DRUGS (1)
  1. TWINJECT 0.3 [Suspect]
     Indication: HYPERSENSITIVITY
     Dosage: 0.3 MG, AS NEEDED
     Dates: start: 20100223, end: 20100223

REACTIONS (2)
  - DEVICE FAILURE [None]
  - WRONG TECHNIQUE IN DRUG USAGE PROCESS [None]
